FAERS Safety Report 21822732 (Version 4)
Quarter: 2023Q2

REPORT INFORMATION
  Report Type: Other
  Country: CA (occurrence: None)
  Receive Date: 20230105
  Receipt Date: 20230626
  Transmission Date: 20230722
  Serious: Yes (Other)
  Sender: FDA-Public Use
  Company Number: CA-ROCHE-2181212

PATIENT
  Sex: Female
  Weight: 83 kg

DRUGS (32)
  1. ACTEMRA [Suspect]
     Active Substance: TOCILIZUMAB
     Indication: Rheumatoid arthritis
     Dosage: NO PIRS RECEIVED BETWEEN 20-SEP-2017 TO 12-JUN-2018. DOSAGE NOTED ACCORDING TO PRESCRIPTION ENROLMEN
     Route: 042
     Dates: start: 20170920, end: 20171227
  2. ACTEMRA [Suspect]
     Active Substance: TOCILIZUMAB
     Dosage: NO PIRS RECEIVED BETWEEN 20-SEP-2017 TO 12-JUN-2018. DOSAGE NOTED ACCORDING TO PRESCRIPTION ENROLMEN
     Route: 042
     Dates: start: 20180123, end: 20180918
  3. ACTEMRA [Suspect]
     Active Substance: TOCILIZUMAB
     Route: 042
     Dates: start: 20181016, end: 20181016
  4. ACTEMRA [Suspect]
     Active Substance: TOCILIZUMAB
     Dosage: ADDITIONAL BATCH/LOT FROM 11-DEC-2018: B2079 (30-SEP-2020)
     Route: 042
     Dates: start: 20181114, end: 20181211
  5. ACTEMRA [Suspect]
     Active Substance: TOCILIZUMAB
     Dosage: ADDITIONAL BATCH/LOT FROM 01-MAY-2019: B2082 (30-NOV-2020)
     Route: 042
     Dates: start: 20190208, end: 20190501
  6. ACTEMRA [Suspect]
     Active Substance: TOCILIZUMAB
     Dosage: ADDITIONAL BATCH/LOT FROM 10-DEC-2019: B2086 (31-MAY-2021)
     Route: 042
     Dates: start: 20190614, end: 20191210
  7. ACTEMRA [Suspect]
     Active Substance: TOCILIZUMAB
     Dosage: ADDITIONAL BATCH LOT FROM 29-APR-2020: B2083B11 31-OCT-2021
     Route: 042
     Dates: start: 20200107, end: 20200429
  8. ACTEMRA [Suspect]
     Active Substance: TOCILIZUMAB
     Route: 042
     Dates: start: 20220921
  9. ACTEMRA [Suspect]
     Active Substance: TOCILIZUMAB
     Route: 042
  10. ACTEMRA [Suspect]
     Active Substance: TOCILIZUMAB
     Route: 042
     Dates: start: 20190501
  11. ACTEMRA [Suspect]
     Active Substance: TOCILIZUMAB
     Indication: Rheumatoid arthritis
     Dosage: ON HOLD
     Route: 058
     Dates: start: 20200526, end: 20220705
  12. ACTEMRA [Suspect]
     Active Substance: TOCILIZUMAB
     Route: 058
     Dates: start: 2022, end: 20220906
  13. ACTEMRA [Suspect]
     Active Substance: TOCILIZUMAB
     Route: 058
     Dates: start: 2023
  14. OXYCODONE HYDROCHLORIDE [Concomitant]
     Active Substance: OXYCODONE HYDROCHLORIDE
  15. SULFASALAZINE [Concomitant]
     Active Substance: SULFASALAZINE
  16. PREDNISONE [Concomitant]
     Active Substance: PREDNISONE
  17. AMLODIPINE [Concomitant]
     Active Substance: AMLODIPINE BESYLATE
  18. HABITROL [Concomitant]
     Active Substance: NICOTINE
  19. MONTELUKAN [Concomitant]
  20. CYCLOBENZAPRINE [Concomitant]
     Active Substance: CYCLOBENZAPRINE
     Dosage: PRN
  21. ROSUVASTATIN [Concomitant]
     Active Substance: ROSUVASTATIN
  22. DIFFERIN [Concomitant]
     Active Substance: ADAPALENE
     Route: 061
  23. ALPRAZOLAM [Concomitant]
     Active Substance: ALPRAZOLAM
  24. PANTOPRAZOLE SODIUM [Concomitant]
     Active Substance: PANTOPRAZOLE SODIUM
  25. SYNTHROID [Concomitant]
     Active Substance: LEVOTHYROXINE SODIUM
  26. NASONEX [Concomitant]
     Active Substance: MOMETASONE FUROATE
  27. FOLIC ACID [Concomitant]
     Active Substance: FOLIC ACID
  28. CORTISONE [Concomitant]
     Active Substance: CORTISONE
     Route: 065
  29. LYRICA [Concomitant]
     Active Substance: PREGABALIN
     Indication: Pain
     Dates: start: 20200418
  30. MONTELUKAST [Concomitant]
     Active Substance: MONTELUKAST SODIUM
  31. PANTOPRAZOLE [Concomitant]
     Active Substance: PANTOPRAZOLE
  32. FOLIC ACID [Concomitant]
     Active Substance: FOLIC ACID

REACTIONS (35)
  - Crohn^s disease [Unknown]
  - Glaucoma [Unknown]
  - Sputum discoloured [Not Recovered/Not Resolved]
  - Productive cough [Recovered/Resolved]
  - Sneezing [Not Recovered/Not Resolved]
  - Rhinorrhoea [Not Recovered/Not Resolved]
  - Bronchitis [Recovering/Resolving]
  - Arthralgia [Not Recovered/Not Resolved]
  - Heart rate increased [Unknown]
  - Oxygen saturation decreased [Unknown]
  - Blood pressure increased [Unknown]
  - Nasopharyngitis [Recovered/Resolved]
  - Pneumonia [Not Recovered/Not Resolved]
  - Eye inflammation [Unknown]
  - Investigation abnormal [Recovered/Resolved]
  - Weight increased [Unknown]
  - Blood pressure diastolic increased [Unknown]
  - Blood pressure systolic increased [Unknown]
  - Blood pressure systolic abnormal [Unknown]
  - Peripheral swelling [Not Recovered/Not Resolved]
  - Hypoaesthesia [Not Recovered/Not Resolved]
  - Blood pressure diastolic abnormal [Unknown]
  - Joint swelling [Not Recovered/Not Resolved]
  - Body temperature increased [Unknown]
  - Blood pressure fluctuation [Unknown]
  - Cough [Not Recovered/Not Resolved]
  - Pain in extremity [Unknown]
  - Erythema [Unknown]
  - Cellulitis [Recovering/Resolving]
  - Pyrexia [Unknown]
  - Oxygen saturation decreased [Unknown]
  - Rash [Unknown]
  - Erythema [Not Recovered/Not Resolved]
  - Peripheral swelling [Not Recovered/Not Resolved]
  - Swelling [Not Recovered/Not Resolved]

NARRATIVE: CASE EVENT DATE: 20180101
